FAERS Safety Report 12526709 (Version 2)
Quarter: 2016Q3

REPORT INFORMATION
  Report Type: Spontaneous
  Country: US (occurrence: US)
  Receive Date: 20160705
  Receipt Date: 20160713
  Transmission Date: 20161109
  Serious: No
  Sender: FDA-Public Use
  Company Number: US-BAYER-2016-125956

PATIENT
  Age: 62 Year
  Sex: Male
  Weight: 83.9 kg

DRUGS (1)
  1. MIRALAX [Suspect]
     Active Substance: POLYETHYLENE GLYCOL 3350
     Indication: CONSTIPATION
     Dosage: UNK
     Dates: start: 2014, end: 20160627

REACTIONS (7)
  - Constipation [None]
  - Drug ineffective [None]
  - Faeces hard [None]
  - Product use issue [None]
  - Bowel movement irregularity [None]
  - Drug effect incomplete [None]
  - Gastrointestinal motility disorder [None]
